FAERS Safety Report 19224450 (Version 2)
Quarter: 2021Q2

REPORT INFORMATION
  Report Type: Report from Study
  Country: US (occurrence: US)
  Receive Date: 20210506
  Receipt Date: 20210513
  Transmission Date: 20210717
  Serious: No
  Sender: FDA-Public Use
  Company Number: NVSC2021US101849

PATIENT
  Sex: Female

DRUGS (1)
  1. ILARIS [Suspect]
     Active Substance: CANAKINUMAB
     Indication: IMPLANTABLE DEFIBRILLATOR INSERTION
     Dosage: 300 MG, QMO
     Route: 058

REACTIONS (2)
  - Product use in unapproved indication [Unknown]
  - Joint swelling [Unknown]
